FAERS Safety Report 7173829 (Version 5)
Quarter: 2013Q2

REPORT INFORMATION
  Report Type: Report from Study
  Country: JP (occurrence: JP)
  Receive Date: 20091111
  Receipt Date: 20130613
  Transmission Date: 20140414
  Serious: Yes (Death, Life-Threatening, Hospitalization)
  Sender: FDA-Public Use
  Company Number: JP-BRISTOL-MYERS SQUIBB COMPANY-14810956

PATIENT
  Age: 75 Year
  Sex: Male

DRUGS (6)
  1. SPRYCEL [Suspect]
     Indication: BLAST CRISIS IN MYELOGENOUS LEUKAEMIA
     Route: 048
     Dates: start: 20090930, end: 20091013
  2. OMEPRAZOLE [Concomitant]
     Dosage: OMEPRAZOLE SODIUM INJ
     Route: 042
     Dates: start: 20091004, end: 20091009
  3. MEROPENEM [Concomitant]
     Dosage: MEROPENEM HYDRATE INJ
     Route: 042
     Dates: start: 20090909, end: 20090920
  4. DORIPENEM [Concomitant]
     Dosage: DORIPENEM HYDRATE INJ
     Route: 042
     Dates: start: 20090921, end: 20090924
  5. PIPERACILLIN [Concomitant]
     Dosage: PIPERACILLIN HYDRATE INJ
     Route: 042
     Dates: start: 20090925, end: 20091006
  6. ZOSYN [Concomitant]
     Route: 042
     Dates: start: 20090925, end: 20091006

REACTIONS (4)
  - Malignant neoplasm progression [Fatal]
  - Renal failure [Fatal]
  - Gastrointestinal haemorrhage [Recovering/Resolving]
  - Anaemia [Recovered/Resolved]
